FAERS Safety Report 11092875 (Version 3)
Quarter: 2016Q3

REPORT INFORMATION
  Report Type: Spontaneous
  Country: US (occurrence: US)
  Receive Date: 20150506
  Receipt Date: 20160930
  Transmission Date: 20161109
  Serious: Yes (Hospitalization)
  Sender: FDA-Public Use
  Company Number: US-JNJFOC-20150422466

PATIENT
  Age: 65 Year
  Sex: Male

DRUGS (6)
  1. XARELTO [Suspect]
     Active Substance: RIVAROXABAN
     Indication: PARALYSIS
     Route: 048
     Dates: end: 2012
  2. XARELTO [Suspect]
     Active Substance: RIVAROXABAN
     Indication: PARALYSIS
     Route: 048
     Dates: start: 201207, end: 201306
  3. XARELTO [Suspect]
     Active Substance: RIVAROXABAN
     Indication: AMNESIA
     Route: 048
     Dates: end: 2012
  4. XARELTO [Suspect]
     Active Substance: RIVAROXABAN
     Indication: AMNESIA
     Route: 048
     Dates: start: 201207, end: 201306
  5. XARELTO [Suspect]
     Active Substance: RIVAROXABAN
     Indication: ANTICOAGULANT THERAPY
     Route: 048
     Dates: end: 2012
  6. XARELTO [Suspect]
     Active Substance: RIVAROXABAN
     Indication: ANTICOAGULANT THERAPY
     Route: 048
     Dates: start: 201207, end: 201306

REACTIONS (9)
  - Amnesia [Unknown]
  - Haemorrhagic stroke [Unknown]
  - Epistaxis [Unknown]
  - Internal haemorrhage [Unknown]
  - Ischaemic stroke [Unknown]
  - Cerebrovascular accident [Unknown]
  - Cerebral haemorrhage [Unknown]
  - Myocardial infarction [Unknown]
  - Haematochezia [Unknown]

NARRATIVE: CASE EVENT DATE: 201302
